FAERS Safety Report 6235942-8 (Version None)
Quarter: 2009Q2

REPORT INFORMATION
  Report Type: 
  Country: None (occurrence: None)
  Receive Date: 20090619
  Receipt Date: 20090608
  Transmission Date: 20091009
  Serious: Yes (Other)
  Sender: FDA-Public Use
  Company Number: PHHY2009BR22825

PATIENT
  Age: 25 Year
  Sex: Male

DRUGS (2)
  1. LEPONEX [Suspect]
     Indication: SCHIZOPHRENIA
     Dosage: 3 DF, QD
     Route: 048
     Dates: start: 20090401
  2. DEPAKOTE [Concomitant]
     Dosage: 3 DF, QD
     Route: 048
     Dates: start: 20081201

REACTIONS (1)
  - GINGIVAL HYPERPLASIA [None]
